FAERS Safety Report 8430952-4 (Version None)
Quarter: 2012Q2

REPORT INFORMATION
  Report Type: 
  Country: None (occurrence: None)
  Receive Date: 20120612
  Receipt Date: 20120608
  Transmission Date: 20120825
  Serious: No
  Sender: FDA-Public Use
  Company Number: US-BAYER-2012-057956

PATIENT
  Age: 77 Year
  Sex: Female
  Weight: 77 kg

DRUGS (5)
  1. METOPROLOL [Concomitant]
  2. KEPPRA [Concomitant]
  3. PLAVIX [Concomitant]
  4. ASPIRIN [Concomitant]
     Indication: ISCHAEMIC HEART DISEASE PROPHYLAXIS
     Dosage: 81 MG, UNK
  5. ALEVE (CAPLET) [Suspect]
     Indication: ARTHRALGIA
     Dosage: 2 U, QD
     Route: 048
     Dates: start: 20120605

REACTIONS (1)
  - ARTHRALGIA [None]
